FAERS Safety Report 8291738-7 (Version None)
Quarter: 2012Q2

REPORT INFORMATION
  Report Type: 
  Country: None (occurrence: None)
  Receive Date: 20120417
  Receipt Date: 20110715
  Transmission Date: 20120825
  Serious: No
  Sender: FDA-Public Use
  Company Number: US-ASTRAZENECA-2011SE42614

PATIENT
  Age: 45 Year
  Sex: Female
  Weight: 56.7 kg

DRUGS (8)
  1. IMITREX [Concomitant]
  2. NEXIUM [Suspect]
     Indication: GASTROOESOPHAGEAL REFLUX DISEASE
     Dosage: 40 MG, TWO TIMES A DAY
     Route: 048
     Dates: start: 20090101
  3. COMPAZINE [Concomitant]
  4. TRAZODONE HCL [Concomitant]
  5. PROZAC [Concomitant]
  6. SEROQUEL [Suspect]
     Route: 048
  7. TALWIN [Concomitant]
  8. SEROQUEL [Suspect]
     Indication: INSOMNIA
     Route: 048
     Dates: start: 20100101, end: 20110701

REACTIONS (6)
  - INSOMNIA [None]
  - OFF LABEL USE [None]
  - DRUG DOSE OMISSION [None]
  - INAPPROPRIATE SCHEDULE OF DRUG ADMINISTRATION [None]
  - DRUG INEFFECTIVE [None]
  - GASTROOESOPHAGEAL REFLUX DISEASE [None]
